FAERS Safety Report 6293068-1 (Version None)
Quarter: 2009Q3

REPORT INFORMATION
  Report Type: 
  Country: None (occurrence: None)
  Receive Date: 20090729
  Receipt Date: 20090720
  Transmission Date: 20100115
  Serious: Yes (Hospitalization)
  Sender: FDA-Public Use
  Company Number: ADR10122009

PATIENT
  Age: 64 Year
  Sex: Female

DRUGS (2)
  1. AMLODIPINE [Suspect]
     Indication: HYPERTENSION
     Dosage: 1.5MG/DAY
  2. PERINDOPRIL ERBUMINE [Suspect]
     Indication: HYPERTENSION
     Dosage: 2.4MG/DAY; UNKNOWN

REACTIONS (3)
  - BLOOD PRESSURE INCREASED [None]
  - RENAL ARTERY STENOSIS [None]
  - RENAL IMPAIRMENT [None]
